APPROVED DRUG PRODUCT: HYDROCHLOROTHIAZIDE
Active Ingredient: HYDROCHLOROTHIAZIDE
Strength: 12.5MG
Dosage Form/Route: CAPSULE;ORAL
Application: A078389 | Product #001
Applicant: APOTEX INC
Approved: May 16, 2008 | RLD: No | RS: No | Type: DISCN